FAERS Safety Report 6579775-1 (Version None)
Quarter: 2010Q1

REPORT INFORMATION
  Report Type: 
  Country: None (occurrence: None)
  Receive Date: 20100212
  Receipt Date: 20100205
  Transmission Date: 20100710
  Serious: Yes (Other)
  Sender: FDA-Public Use
  Company Number: B0630756A

PATIENT
  Sex: Male

DRUGS (1)
  1. ATRIANCE [Suspect]
     Dosage: 1500MGM2 PER DAY
     Route: 065
     Dates: start: 20090101, end: 20090101

REACTIONS (9)
  - DEPRESSION [None]
  - GAIT DISTURBANCE [None]
  - HEADACHE [None]
  - HYPOACUSIS [None]
  - HYPOREFLEXIA [None]
  - PAIN IN EXTREMITY [None]
  - POLYNEUROPATHY [None]
  - VERTIGO [None]
  - VESTIBULAR DISORDER [None]
